FAERS Safety Report 13272364 (Version 1)
Quarter: 2017Q1

REPORT INFORMATION
  Report Type: Spontaneous
  Country: US (occurrence: US)
  Receive Date: 20170225
  Receipt Date: 20170225
  Transmission Date: 20170428
  Serious: No
  Sender: FDA-Public Use
  Company Number: None

PATIENT
  Age: 57 Year
  Sex: Male
  Weight: 73.35 kg

DRUGS (4)
  1. BABY ASPIRIN [Concomitant]
     Active Substance: ASPIRIN
  2. BLISTEX MEDICATED MINT LIP BALM [Suspect]
     Active Substance: DIMETHICONE\OXYBENZONE\PADIMATE O
     Indication: CHAPPED LIPS
     Dosage: QUANTITY:.21 OUNCE(S);?
     Route: 061
     Dates: start: 20160224, end: 20170225
  3. LOT ENSIGN [Concomitant]
  4. MOBIC [Concomitant]
     Active Substance: MELOXICAM

REACTIONS (2)
  - Oral discomfort [None]
  - Lip swelling [None]

NARRATIVE: CASE EVENT DATE: 20170224
